FAERS Safety Report 8181546-X (Version None)
Quarter: 2012Q1

REPORT INFORMATION
  Report Type: 
  Country: None (occurrence: None)
  Receive Date: 20120126
  Receipt Date: 20111201
  Transmission Date: 20120608
  Serious: No
  Sender: FDA-Public Use
  Company Number: PHEH2011US010620

PATIENT
  Sex: Female

DRUGS (1)
  1. AFINITOR [Suspect]
     Indication: PANCREATIC CARCINOMA
     Dosage: 10 MG, ONE PER DAY, ORAL
     Route: 048

REACTIONS (3)
  - RASH [None]
  - PLATELET COUNT ABNORMAL [None]
  - WHITE BLOOD CELL COUNT ABNORMAL [None]
